FAERS Safety Report 9431357 (Version 4)
Quarter: 2013Q3

REPORT INFORMATION
  Report Type: Spontaneous
  Country: US (occurrence: US)
  Receive Date: 20130730
  Receipt Date: 20130903
  Transmission Date: 20140515
  Serious: Yes (Other)
  Sender: FDA-Public Use
  Company Number: US-BAXTER-2013BAX029864

PATIENT
  Sex: 0

DRUGS (1)
  1. CLINIMIX E? -SULFITE-FREE (AMINO ACID WITH ELECTROLYTES IN DEXTROSE WI [Suspect]
     Indication: PARENTERAL NUTRITION
     Dates: start: 20130719, end: 20130719

REACTIONS (3)
  - Convulsion [Recovered/Resolved]
  - Product colour issue [Unknown]
  - Poor quality drug administered [Recovered/Resolved]
